FAERS Safety Report 11156654 (Version 1)
Quarter: 2015Q2

REPORT INFORMATION
  Report Type: Spontaneous
  Country: US (occurrence: None)
  Receive Date: 20150601
  Receipt Date: 20150601
  Transmission Date: 20150821
  Serious: Yes (Life-Threatening, Disabling)
  Sender: FDA-Public Use
  Company Number: None

PATIENT
  Age: 61 Year
  Sex: Female
  Weight: 58.97 kg

DRUGS (3)
  1. CELEBREX [Suspect]
     Active Substance: CELECOXIB
     Indication: SPINAL COLUMN STENOSIS
     Dosage: 1   ONCE DAILY TAKEN BY MOUTH
     Route: 048
     Dates: start: 20050408, end: 20150424
  2. CELEBREX [Suspect]
     Active Substance: CELECOXIB
     Indication: SPINAL FUSION SURGERY
     Dosage: 1   ONCE DAILY TAKEN BY MOUTH
     Route: 048
     Dates: start: 20050408, end: 20150424
  3. CELEBREX [Suspect]
     Active Substance: CELECOXIB
     Indication: ARTHRITIS
     Dosage: 1   ONCE DAILY TAKEN BY MOUTH
     Route: 048
     Dates: start: 20050408, end: 20150424

REACTIONS (5)
  - Chronic kidney disease [None]
  - Hypertension [None]
  - Upper limb fracture [None]
  - Anaemia [None]
  - Bone disorder [None]

NARRATIVE: CASE EVENT DATE: 20150424
